FAERS Safety Report 10615938 (Version 1)
Quarter: 2014Q4

REPORT INFORMATION
  Report Type: Spontaneous
  Country: DE (occurrence: DE)
  Receive Date: 20141201
  Receipt Date: 20141201
  Transmission Date: 20150529
  Serious: Yes (Death, Other)
  Sender: FDA-Public Use
  Company Number: DE-CELGENE-062-50794-14081153

PATIENT
  Age: 78 Year
  Sex: Male

DRUGS (1)
  1. VIDAZA [Suspect]
     Active Substance: AZACITIDINE
     Indication: MYELODYSPLASTIC SYNDROME
     Route: 050

REACTIONS (10)
  - Sepsis [Fatal]
  - Bursitis [Unknown]
  - Febrile neutropenia [Unknown]
  - Impaired healing [Unknown]
  - Pyoderma gangrenosum [Unknown]
  - Skin lesion [Unknown]
  - Skin necrosis [Unknown]
  - Pyrexia [Unknown]
  - General physical health deterioration [Unknown]
  - Inflammation [Unknown]
